FAERS Safety Report 24780626 (Version 1)
Quarter: 2024Q4

REPORT INFORMATION
  Report Type: Other
  Country: GB (occurrence: GB)
  Receive Date: 20241227
  Receipt Date: 20241227
  Transmission Date: 20250115
  Serious: Yes (Hospitalization, Other)
  Sender: ASPEN
  Company Number: None

PATIENT

DRUGS (27)
  1. DEXAMETHASONE [Suspect]
     Active Substance: DEXAMETHASONE
     Indication: Product used for unknown indication
     Dosage: 0.5 MILLIGRAM, QD, TAKE ONE TABLET EACH MORNING
     Route: 065
  2. DEXAMETHASONE [Suspect]
     Active Substance: DEXAMETHASONE
     Dosage: 4 MILLIGRAM, ONCE A DAY 14 TABLET
     Route: 065
     Dates: start: 20240717
  3. FLUTICASONE PROPIONATE\SALMETEROL XINAFOATE [Concomitant]
     Active Substance: FLUTICASONE PROPIONATE\SALMETEROL XINAFOATE
     Indication: Product used for unknown indication
     Dosage: 2 DOSAGE FORM, 1 DOSE 12 HOURS (TWO PUFFS TO BE INHALED TWICE A DAY - USES )
     Dates: start: 20240724
  4. ATENOLOL [Concomitant]
     Active Substance: ATENOLOL
     Indication: Product used for unknown indication
     Dosage: 25 MILLIGRAM, QD, ONE TO BE TAKEN EACH DAY
     Route: 065
     Dates: start: 20240626
  5. LANSOPRAZOLE [Concomitant]
     Active Substance: LANSOPRAZOLE
     Indication: Product used for unknown indication
     Dosage: 30 MILLIGRAM, QD, ONE TO BE TAKEN EACH MORNING
     Route: 065
  6. TRIPTORELIN [Concomitant]
     Active Substance: TRIPTORELIN
     Indication: Product used for unknown indication
     Dosage: 22.5 MILLIGRAM, USE ONCE EVERY SIX MONTHS
     Route: 065
     Dates: start: 20240325
  7. ACETAMINOPHEN [Concomitant]
     Active Substance: ACETAMINOPHEN
     Indication: Product used for unknown indication
     Dosage: 1000 MILLIGRAM, TWO TO BE TAKEN EVERY 4-6 HOURS FOUR TIMES A DAY
     Route: 065
     Dates: start: 20240801
  8. ALLOPURINOL [Concomitant]
     Active Substance: ALLOPURINOL
     Indication: Product used for unknown indication
     Dosage: 300 MILLIGRAM, QD, ONE TO BE TAKEN EACH DAY AFTER FOOD
     Route: 065
     Dates: start: 20240626
  9. AMLODIPINE [Concomitant]
     Active Substance: AMLODIPINE BESYLATE
     Indication: Product used for unknown indication
     Dosage: 2.5 MILLIGRAM, QD, ONE TABLET DAILY AT THE SAME TIME EACH DAY
     Route: 065
     Dates: start: 20240626
  10. ASPIRIN [Concomitant]
     Active Substance: ASPIRIN
     Indication: Product used for unknown indication
     Dosage: 75 MILLIGRAM, QD, TAKE ONE DAILY
     Route: 065
     Dates: start: 20240626
  11. HALOPERIDOL [Concomitant]
     Active Substance: HALOPERIDOL
     Indication: Product used for unknown indication
     Dosage: 10 MG / 5 ML ORAL SOLUTION0.5 ML TO BE TAKEN AT NIGHT 100 ML - WIFE STATES ONLY 1 DOSE BEFORE ADMISS
     Route: 048
     Dates: start: 20240725
  12. HALOPERIDOL [Concomitant]
     Active Substance: HALOPERIDOL
     Dosage: 1 MILLILITRE, QD, 5 MG / 5 ML ORAL SOLUTION1 ML TO BE TAKEN AT NIGHT. 100 ML
     Route: 065
     Dates: start: 20240724
  13. ISOSORBIDE MONONITRATE [Concomitant]
     Active Substance: ISOSORBIDE MONONITRATE
     Indication: Product used for unknown indication
     Dosage: 60 MILLIGRAM, QD, TAKE HALF OF ONE TABLET ONCE DAILY
     Route: 065
  14. LACTULOSE [Concomitant]
     Active Substance: LACTULOSE
     Indication: Product used for unknown indication
     Dosage: 15 MILLILITRE, THREE 5 ML SPOONFULS TO BE TAKEN TWICE A DAY AS REQUIRED -SUSPENDED
     Route: 048
     Dates: start: 20240717
  15. SENNA [Concomitant]
     Active Substance: SENNA LEAF\SENNOSIDES\SENNOSIDES A AND B
     Indication: Product used for unknown indication
     Dosage: 15 MILLIGRAM, QD, TWO TO BE TAKEN AT NIGHT
     Route: 065
  16. CALCIUM CARBONATE\CHOLECALCIFEROL [Concomitant]
     Active Substance: CALCIUM CARBONATE\CHOLECALCIFEROL
     Indication: Product used for unknown indication
     Dosage: 1 DOSAGE FORM, QD, ONE TO BE TAKEN EACH DAY
     Route: 065
  17. SOLIFENACIN [Concomitant]
     Active Substance: SOLIFENACIN
     Indication: Product used for unknown indication
     Dosage: 5 MILLIGRAM, QD, ONE TO BE TAKEN EACH DAY
     Route: 065
  18. RAMIPRIL [Concomitant]
     Active Substance: RAMIPRIL
     Indication: Product used for unknown indication
     Dosage: 5 MILLIGRAM, 1 DOSE 12 HOURS, ONE TO BE TAKEN TWICE A DAY
     Route: 065
  19. OXYCODONE HYDROCHLORIDE [Concomitant]
     Active Substance: OXYCODONE HYDROCHLORIDE
     Indication: Product used for unknown indication
     Dosage: 5 MILLIGRAM, TAKE ONE CAPSULE AS REQUIRED FOR BREAKTHROUGH PAIN. IDEALLY 4 HOURLY ASNEEDED.
     Route: 065
     Dates: start: 20240724
  20. NICORANDIL [Concomitant]
     Active Substance: NICORANDIL
     Indication: Product used for unknown indication
     Dosage: 20 MILLIGRAM, 1 DOSE 12 HOURS, TAKE ONE TWICE DAILY
     Route: 065
  21. DOCUSATE [Concomitant]
     Active Substance: DOCUSATE
     Indication: Product used for unknown indication
     Dosage: 100 MILLIGRAM, TAKE ONE OR TWO CAPSULES TWICE DAILY WHEN REQUIRED FOR CONSTIPATION 40CAPSULE - PHARM
     Route: 065
     Dates: start: 20240717
  22. Cetraben [Concomitant]
     Indication: Product used for unknown indication
     Dosage: UNK, WHEN NEEDED FOR DRY SKIN - NO LONGER USES
     Route: 065
     Dates: start: 20240718
  23. NITROFURANTOIN [Concomitant]
     Active Substance: NITROFURANTOIN
     Indication: Product used for unknown indication
     Dosage: 100 MILLIGRAM, 1 DOSE 12 HOURS, ONE TO BE TAKEN TWICE A DAY 14 CAPSULE
     Route: 065
     Dates: start: 20240726
  24. METOCLOPRAMIDE [Concomitant]
     Active Substance: METOCLOPRAMIDE
     Indication: Product used for unknown indication
     Dosage: 10 MILLIGRAM, 1 DOSE 8 HOURS, ONE TO BE TAKEN THREE TIMES A DAY - OUTSIDE
     Route: 065
     Dates: start: 20240724
  25. OXYCODONE HYDROCHLORIDE [Concomitant]
     Active Substance: OXYCODONE HYDROCHLORIDE
     Indication: Product used for unknown indication
     Dosage: 20 MILLIGRAM, 1 DOSE 12 HOURS, ONE TO BE TAKEN EVERY 12 HOURSWIFE STATES 40MG TWICE A DAY DOSE - 20M
     Route: 065
     Dates: start: 20240814
  26. ENSURE [Concomitant]
     Active Substance: AMINO ACIDS\DEXTROSE\ELECTROLYTES NOS\SOYBEAN OIL\VITAMINS
     Indication: Product used for unknown indication
     Dosage: WHEN REQUIRED - TAKES 1-2 AS NEEDED
     Route: 065
     Dates: start: 20240725
  27. ALBUTEROL [Concomitant]
     Active Substance: ALBUTEROL
     Indication: Product used for unknown indication
     Dosage: ONE OR TWO PUFFS TO BE INHALED FOUR TIMES A DAYWHEN REQUIRED - USES,
     Dates: start: 20240724

REACTIONS (2)
  - Hallucination [Unknown]
  - Confusional state [Unknown]
